FAERS Safety Report 5499774-0 (Version None)
Quarter: 2007Q4

REPORT INFORMATION
  Report Type: 
  Country: None (occurrence: None)
  Receive Date: 20071026
  Receipt Date: 20071017
  Transmission Date: 20080405
  Serious: Yes (Other)
  Sender: FDA-Public Use
  Company Number: JP-ROCHE-526821

PATIENT
  Age: 69 Year
  Sex: Male

DRUGS (1)
  1. VESANOID [Suspect]
     Indication: ACUTE PROMYELOCYTIC LEUKAEMIA
     Route: 048
     Dates: start: 20070101, end: 20070101

REACTIONS (2)
  - PULMONARY ALVEOLAR HAEMORRHAGE [None]
  - RETINOIC ACID SYNDROME [None]
